FAERS Safety Report 9123624 (Version 1)
Quarter: 2013Q1

REPORT INFORMATION
  Report Type: Spontaneous
  Country: FR (occurrence: FR)
  Receive Date: 20130227
  Receipt Date: 20130227
  Transmission Date: 20140127
  Serious: Yes (Hospitalization)
  Sender: FDA-Public Use
  Company Number: FR-PFIZER INC-2013064445

PATIENT
  Age: 26 Year
  Sex: Female

DRUGS (1)
  1. ADEPAL [Suspect]
     Indication: ORAL CONTRACEPTION
     Dosage: BIPHASIC ETHINYLESTRADIOL 30-40 ?G/ LEVONORGESTREL 150-200 ?G
     Route: 048
     Dates: end: 20090628

REACTIONS (4)
  - Movement disorder [Recovered/Resolved]
  - Muscle disorder [Recovered/Resolved]
  - Paraesthesia [Recovered/Resolved]
  - Headache [Recovered/Resolved]
